FAERS Safety Report 4816955-7 (Version None)
Quarter: 2005Q3

REPORT INFORMATION
  Report Type: 
  Country: None (occurrence: None)
  Receive Date: 20050929
  Receipt Date: 20050620
  Transmission Date: 20060218
  Serious: No
  Sender: FDA-Public Use
  Company Number: 05P-163-0303544-00

PATIENT
  Age: 58 Year
  Sex: Female

DRUGS (6)
  1. HUMIRA [Suspect]
     Indication: RHEUMATOID ARTHRITIS
     Dosage: 40 MG, 1 IN 1 WK, SUBCUTANEOUS
     Route: 058
     Dates: start: 20050501
  2. SULFASALAZINE [Concomitant]
  3. ALENDRONATE SODIUM [Concomitant]
  4. ESTRADIOL INJ [Concomitant]
  5. NAPROXEN SODIUM [Concomitant]
  6. DIPHENHYDRAMINE HCL [Concomitant]

REACTIONS (2)
  - FATIGUE [None]
  - RASH [None]
